FAERS Safety Report 15730260 (Version 1)
Quarter: 2018Q4

REPORT INFORMATION
  Report Type: Spontaneous
  Country: US (occurrence: US)
  Receive Date: 20181216
  Receipt Date: 20181216
  Transmission Date: 20190205
  Serious: Yes (Other)
  Sender: FDA-Public Use
  Company Number: None

PATIENT
  Age: 59 Year
  Sex: Female
  Weight: 75.6 kg

DRUGS (1)
  1. ZOLPIDEM 12.5MG [Suspect]
     Active Substance: ZOLPIDEM TARTRATE
     Indication: INSOMNIA
     Dates: start: 20181215, end: 20181216

REACTIONS (10)
  - Decreased activity [None]
  - Presyncope [None]
  - Product quality issue [None]
  - Drug ineffective [None]
  - Feeling abnormal [None]
  - Heart rate increased [None]
  - Formication [None]
  - Asthenia [None]
  - Nervous system disorder [None]
  - Manufacturing materials issue [None]

NARRATIVE: CASE EVENT DATE: 20180915
